FAERS Safety Report 15678761 (Version 1)
Quarter: 2018Q4

REPORT INFORMATION
  Report Type: Spontaneous
  Country: US (occurrence: US)
  Receive Date: 20181201
  Receipt Date: 20181201
  Transmission Date: 20190205
  Serious: Yes (Disabling)
  Sender: FDA-Public Use
  Company Number: None

PATIENT
  Age: 31 Year
  Sex: Male
  Weight: 89.9 kg

DRUGS (23)
  1. GLYCOPYRROLATE. [Concomitant]
     Active Substance: GLYCOPYRROLATE
     Dates: start: 20181130, end: 20181130
  2. NIVOLUMAB [Suspect]
     Active Substance: NIVOLUMAB
     Indication: RECURRENT CANCER
     Dosage: ?          OTHER FREQUENCY:EVERY TWO WEEKS;?
     Route: 041
     Dates: start: 20181125, end: 20181125
  3. NEOSTIGMINE. [Concomitant]
     Active Substance: NEOSTIGMINE METHYLSULFATE
     Dates: start: 20181130, end: 20181130
  4. LACTATED RINGERS SOLUTION [Concomitant]
     Active Substance: CALCIUM CHLORIDE\POTASSIUM CHLORIDE\SODIUM CHLORIDE\SODIUM LACTATE
     Dates: start: 20181130, end: 20181130
  5. LEVITERACETAM [Concomitant]
     Active Substance: LEVETIRACETAM
     Dates: start: 20181007
  6. ENOXAPARIN [Concomitant]
     Active Substance: ENOXAPARIN
     Dates: start: 20181126
  7. SEVOFLURANE. [Concomitant]
     Active Substance: SEVOFLURANE
     Dates: start: 20181130, end: 20181130
  8. LACOSAMIDE. [Concomitant]
     Active Substance: LACOSAMIDE
     Dates: start: 20181130
  9. ACETAMINOPHEN. [Concomitant]
     Active Substance: ACETAMINOPHEN
     Dates: start: 20181123
  10. CISATRACURIUM. [Concomitant]
     Active Substance: CISATRACURIUM
     Dates: start: 20181130, end: 20181130
  11. LIDOCAINE INJ 2% [Concomitant]
     Dates: start: 20181130, end: 20181130
  12. CEFAZOLIN [Concomitant]
     Active Substance: CEFAZOLIN
     Dates: start: 20181123, end: 20181201
  13. PROPOFOL. [Concomitant]
     Active Substance: PROPOFOL
     Dates: start: 20181130, end: 20181201
  14. ESMOLOL [Concomitant]
     Active Substance: ESMOLOL HYDROCHLORIDE
     Dates: start: 20181130, end: 20181130
  15. NIVOLUMAB [Suspect]
     Active Substance: NIVOLUMAB
     Indication: GLIOBLASTOMA
     Dosage: ?          OTHER FREQUENCY:EVERY TWO WEEKS;?
     Route: 041
     Dates: start: 20181125, end: 20181125
  16. PETROLATUM HYDROPHILIC TOPICAL OINTMENT [Concomitant]
     Dates: start: 20181121
  17. PHENYLEPHRINE [Concomitant]
     Active Substance: PHENYLEPHRINE\PHENYLEPHRINE HYDROCHLORIDE
     Dates: start: 20181130, end: 20181130
  18. HYDROMORPHONE [Concomitant]
     Active Substance: HYDROMORPHONE
     Dates: start: 20181130, end: 20181130
  19. PERFUSION FLUID CNS [Concomitant]
     Dates: start: 20181123, end: 20181130
  20. MIDZOLAM [Concomitant]
     Dates: start: 20181130, end: 20181130
  21. ONDANSETRON [Concomitant]
     Active Substance: ONDANSETRON
     Dates: start: 20181123
  22. HEPARIN SODIUM. [Concomitant]
     Active Substance: HEPARIN SODIUM
     Dates: start: 20181124, end: 20181126
  23. POLYETHYLENE GLYCOL [Concomitant]
     Active Substance: POLYETHYLENE GLYCOLS
     Dates: start: 20181129, end: 20181129

REACTIONS (8)
  - Movement disorder [None]
  - Generalised tonic-clonic seizure [None]
  - Aphasia [None]
  - Mydriasis [None]
  - Vasogenic cerebral oedema [None]
  - Procedural complication [None]
  - Seizure [None]
  - Muscular weakness [None]

NARRATIVE: CASE EVENT DATE: 20181201
